FAERS Safety Report 7674808-3 (Version None)
Quarter: 2011Q3

REPORT INFORMATION
  Report Type: 
  Country: None (occurrence: None)
  Receive Date: 20110810
  Receipt Date: 20110801
  Transmission Date: 20111222
  Serious: Yes (Other)
  Sender: FDA-Public Use
  Company Number: FR-ROCHE-794738

PATIENT
  Sex: Male

DRUGS (14)
  1. GELOX [Concomitant]
     Route: 048
     Dates: start: 20110602
  2. URSOLVAN [Concomitant]
     Route: 048
     Dates: start: 20110603
  3. CIPROFLOXACIN [Suspect]
     Indication: INFECTION PROPHYLAXIS
     Dosage: DOSE: 200MG/100ML
     Route: 042
     Dates: start: 20110602
  4. ZOVIRAX [Suspect]
     Indication: INFECTION PROPHYLAXIS
     Route: 042
     Dates: start: 20110602
  5. TRANXENE [Concomitant]
     Route: 042
     Dates: start: 20110602
  6. MYCOSTATIN [Concomitant]
     Route: 048
     Dates: start: 20110602
  7. FLUCONAZOLE [Concomitant]
     Dates: start: 20110602
  8. CELLCEPT [Suspect]
     Indication: STEM CELL TRANSPLANT
     Dosage: DOSE FORM: POWDER FOR INJECTABLE SOLUTION.
     Route: 042
     Dates: start: 20110606
  9. PRIMPERAN TAB [Suspect]
     Dosage: DOSE FORM: INJECTABLE SOLUTION.
     Route: 042
     Dates: start: 20110602
  10. CEFTAZIDIME SODIUM [Suspect]
     Indication: INFECTION PROPHYLAXIS
     Dosage: DOSE FORM: POWDER FOR INJECTABLE SOLUTION.
     Route: 042
     Dates: start: 20110602
  11. HEPARINE SODIQUE [Concomitant]
     Dosage: DOSE: 24000 UI, FREQUENCY: 1 PER DAY
     Route: 042
     Dates: start: 20110601
  12. CYCLOSPORINE [Suspect]
     Indication: STEM CELL TRANSPLANT
     Route: 042
     Dates: start: 20110606
  13. AMLODIPINE BESYLATE [Concomitant]
     Route: 048
  14. OMEPRAZOLE [Concomitant]
     Route: 042
     Dates: start: 20110602

REACTIONS (1)
  - PARTIAL SEIZURES [None]
